FAERS Safety Report 5821712-9 (Version None)
Quarter: 2008Q3

REPORT INFORMATION
  Report Type: 
  Country: None (occurrence: None)
  Receive Date: 20080711
  Receipt Date: 20080627
  Transmission Date: 20090109
  Serious: Yes (Other)
  Sender: FDA-Public Use
  Company Number: AECAN200800147

PATIENT
  Age: 86 Year
  Sex: Female

DRUGS (2)
  1. GAMUNEX [Suspect]
     Indication: IDIOPATHIC THROMBOCYTOPENIC PURPURA
     Dosage: 10 GM; TOTAL; IV
     Route: 042
     Dates: start: 20080607, end: 20080607
  2. BLOOD TRANSFUSION, AUXILIARY PRODUCTS [Concomitant]

REACTIONS (5)
  - BACILLUS INFECTION [None]
  - BODY TEMPERATURE DECREASED [None]
  - CHILLS [None]
  - HEADACHE [None]
  - THERAPEUTIC PRODUCT CONTAMINATION [None]
